FAERS Safety Report 18548699 (Version 3)
Quarter: 2021Q4

REPORT INFORMATION
  Report Type: Other
  Country: US (occurrence: None)
  Receive Date: 20201126
  Receipt Date: 20211223
  Transmission Date: 20220303
  Serious: Yes (Other)
  Sender: FDA-Public Use
  Company Number: US-ROCHE-2718403

PATIENT
  Sex: Female
  Weight: 81.720 kg

DRUGS (3)
  1. OCREVUS [Suspect]
     Active Substance: OCRELIZUMAB
     Indication: Relapsing multiple sclerosis
     Dosage: INFUSE 300 MG DAY 1 AND 300 MG DAY 15 THEN INFUSE 600MG EVERY 6 MONTHS?DATE OF TREATMENT 23/NOV/2021
     Route: 065
     Dates: start: 20160929
  2. OCREVUS [Suspect]
     Active Substance: OCRELIZUMAB
     Indication: Multiple sclerosis
     Route: 065
     Dates: start: 20171031
  3. RITUXAN [Suspect]
     Active Substance: RITUXIMAB
     Indication: Product used for unknown indication
     Dosage: DATE OF SERVICE: 18/APR/2017
     Route: 065
     Dates: start: 20170418

REACTIONS (2)
  - Herpes zoster [Recovered/Resolved]
  - Memory impairment [Unknown]
